FAERS Safety Report 21637023 (Version 1)
Quarter: 2022Q4

REPORT INFORMATION
  Report Type: Spontaneous
  Country: SI (occurrence: None)
  Receive Date: 20221124
  Receipt Date: 20221124
  Transmission Date: 20230112
  Serious: Yes (Life-Threatening, Hospitalization, Other)
  Sender: FDA-Public Use
  Company Number: SI-ACS-20220171

PATIENT
  Age: 51 Year
  Sex: Male

DRUGS (2)
  1. NOREPINEPHRINE [Concomitant]
     Active Substance: NOREPINEPHRINE
     Indication: Hypotension
     Dosage: INFUSION ()
  2. CEFTRIAXONE [Suspect]
     Active Substance: CEFTRIAXONE
     Indication: Leptospirosis

REACTIONS (2)
  - Jarisch-Herxheimer reaction [Recovering/Resolving]
  - Off label use [Unknown]
